FAERS Safety Report 6524717-8 (Version None)
Quarter: 2009Q4

REPORT INFORMATION
  Report Type: 
  Country: None (occurrence: None)
  Receive Date: 20091214
  Receipt Date: 20091002
  Transmission Date: 20100525
  Serious: Yes (Other)
  Sender: FDA-Public Use
  Company Number: 660199

PATIENT
  Age: 49 Year
  Sex: Female

DRUGS (2)
  1. PEGASYS [Suspect]
     Indication: HEPATITIS C
     Dosage: 180 UG 1 PER WEEK
     Dates: start: 20090123
  2. COPEGUS [Suspect]
     Indication: HEPATITIS C
     Dosage: 1000 MG DAILY
     Dates: start: 20090123

REACTIONS (14)
  - ALOPECIA [None]
  - CHEST PAIN [None]
  - DEPRESSION [None]
  - GINGIVAL RECESSION [None]
  - HALLUCINATION [None]
  - LOOSE TOOTH [None]
  - MOUTH HAEMORRHAGE [None]
  - OROPHARYNGEAL BLISTERING [None]
  - PHOTOSENSITIVITY REACTION [None]
  - SOMNOLENCE [None]
  - TOOTH DISCOLOURATION [None]
  - TOOTHACHE [None]
  - TREMOR [None]
  - WEIGHT INCREASED [None]
